FAERS Safety Report 9686160 (Version 1)
Quarter: 2013Q4

REPORT INFORMATION
  Report Type: Spontaneous
  Country: US (occurrence: US)
  Receive Date: 20131113
  Receipt Date: 20131113
  Transmission Date: 20140711
  Serious: Yes (Hospitalization, Other)
  Sender: FDA-Public Use
  Company Number: US-ACTAVIS-2013-20248

PATIENT
  Age: 70 Year
  Sex: Female

DRUGS (2)
  1. FENTANYL-50 (WATSON LABORATORIES) [Suspect]
     Indication: RESTLESS LEGS SYNDROME
     Dosage: 1 DF, Q72H
     Route: 062
  2. MIRAPEX [Concomitant]
     Indication: RESTLESS LEGS SYNDROME
     Dosage: 1 MG, QAM/QPM
     Route: 048

REACTIONS (2)
  - Constipation [Not Recovered/Not Resolved]
  - Colitis ischaemic [Not Recovered/Not Resolved]
